FAERS Safety Report 10068121 (Version 1)
Quarter: 2014Q2

REPORT INFORMATION
  Report Type: Spontaneous
  Country: US (occurrence: US)
  Receive Date: 20140409
  Receipt Date: 20140409
  Transmission Date: 20141212
  Serious: No
  Sender: FDA-Public Use
  Company Number: US-TEVA-473497USA

PATIENT
  Sex: Female
  Weight: 26.79 kg

DRUGS (3)
  1. QVAR [Suspect]
     Indication: ASTHMA
     Dosage: 2 PUFFS
     Route: 055
     Dates: start: 20140304, end: 20140402
  2. XYZAL [Concomitant]
     Indication: HYPERSENSITIVITY
  3. NEXIUM [Concomitant]

REACTIONS (6)
  - Asthma [Recovered/Resolved]
  - Anxiety [Not Recovered/Not Resolved]
  - Crying [Not Recovered/Not Resolved]
  - Abdominal pain upper [Not Recovered/Not Resolved]
  - Decreased appetite [Not Recovered/Not Resolved]
  - Vomiting [Not Recovered/Not Resolved]
